FAERS Safety Report 4954419-0 (Version None)
Quarter: 2006Q1

REPORT INFORMATION
  Report Type: 
  Country: None (occurrence: None)
  Receive Date: 20060322
  Receipt Date: 20060309
  Transmission Date: 20060701
  Serious: Yes (Other)
  Sender: FDA-Public Use
  Company Number: 2006034221

PATIENT
  Age: 85 Year
  Sex: Female

DRUGS (2)
  1. ARTHROTEC [Suspect]
     Indication: BONE PAIN
     Dates: start: 20060201, end: 20060201
  2. LYRICA [Suspect]
     Indication: BONE PAIN
     Dates: start: 20060201, end: 20060201

REACTIONS (1)
  - ABDOMINAL DISTENSION [None]
